FAERS Safety Report 21219605 (Version 1)
Quarter: 2022Q3

REPORT INFORMATION
  Report Type: Spontaneous
  Country: US (occurrence: US)
  Receive Date: 20220817
  Receipt Date: 20220817
  Transmission Date: 20221027
  Serious: No
  Sender: FDA-Public Use
  Company Number: US-PFIZER INC-PV202200041663

PATIENT
  Age: 53 Year
  Sex: Female

DRUGS (1)
  1. ENBREL [Suspect]
     Active Substance: ETANERCEPT
     Indication: Product used for unknown indication
     Dosage: UNK
     Route: 065

REACTIONS (7)
  - Drug ineffective [Unknown]
  - Headache [Unknown]
  - Loss of personal independence in daily activities [Unknown]
  - Impaired quality of life [Unknown]
  - Therapy interrupted [Unknown]
  - Staphylococcal infection [Unknown]
  - Urinary tract infection [Unknown]
